FAERS Safety Report 12773439 (Version 2)
Quarter: 2016Q3

REPORT INFORMATION
  Report Type: Spontaneous
  Country: ZA (occurrence: ZA)
  Receive Date: 20160922
  Receipt Date: 20160927
  Transmission Date: 20161109
  Serious: No
  Sender: FDA-Public Use
  Company Number: ZA-009507513-1609ZAF007783

PATIENT
  Sex: Female

DRUGS (5)
  1. INTRON A [Suspect]
     Active Substance: INTERFERON ALFA-2B
     Dosage: 5 UNITS, THREE TIMES A WEEK
  2. INTRON A [Suspect]
     Active Substance: INTERFERON ALFA-2B
     Dosage: 10 UNITS, THREE TIMES A WEEK
  3. INTRON A [Suspect]
     Active Substance: INTERFERON ALFA-2B
     Dosage: 10 UNITS, THREE TIMES A WEEK
  4. INTRON A [Suspect]
     Active Substance: INTERFERON ALFA-2B
     Indication: MALIGNANT MELANOMA
     Dosage: 3 UNITS, THREE TIMES A WEEK
  5. INTRON A [Suspect]
     Active Substance: INTERFERON ALFA-2B
     Dosage: 15 UNITS, THREE TIMES A WEEK

REACTIONS (7)
  - Paraesthesia [Unknown]
  - Pain in extremity [Unknown]
  - Quality of life decreased [Not Recovered/Not Resolved]
  - Pain in extremity [Not Recovered/Not Resolved]
  - Hypoaesthesia [Unknown]
  - Fatigue [Unknown]
  - Nausea [Unknown]
